FAERS Safety Report 24679058 (Version 1)
Quarter: 2024Q4

REPORT INFORMATION
  Report Type: Report from Study
  Country: CA (occurrence: CA)
  Receive Date: 20241129
  Receipt Date: 20241129
  Transmission Date: 20250115
  Serious: Yes (Other)
  Sender: LEO PHARM
  Company Number: CA-LEO Pharma-375364

PATIENT
  Age: 25 Year
  Sex: Male

DRUGS (5)
  1. ADBRY [Suspect]
     Active Substance: TRALOKINUMAB-LDRM
     Indication: Dermatitis atopic
     Dosage: LOADING DOSE: 600MG SC; TREATMENT IS ONGOING
     Route: 058
     Dates: start: 20240119, end: 20240119
  2. ADBRY [Suspect]
     Active Substance: TRALOKINUMAB-LDRM
     Indication: Dermatitis atopic
     Dosage: MAINTENANCE DOSE: 300 MG SC EVERY 2 WEEKS; FORMAT: 150 MG/ML PRE-FILLED SYRINGE; TREATMENT IS ONGOIN
     Route: 058
     Dates: start: 2024
  3. ADBRY [Suspect]
     Active Substance: TRALOKINUMAB-LDRM
     Indication: Dermatitis atopic
     Dosage: EXPIRATION DATE: OCT-2025
  4. CITALOPRAM [Concomitant]
     Active Substance: CITALOPRAM
     Indication: Product used for unknown indication
     Dosage: TREATMENT IS ONGOING
  5. CETIRIZINE [Concomitant]
     Active Substance: CETIRIZINE HYDROCHLORIDE
     Indication: Product used for unknown indication
     Dosage: TREATMENT IS ONGOING

REACTIONS (1)
  - Syncope [Not Recovered/Not Resolved]

NARRATIVE: CASE EVENT DATE: 20240101
